FAERS Safety Report 16835755 (Version 1)
Quarter: 2019Q3

REPORT INFORMATION
  Report Type: Spontaneous
  Country: TR (occurrence: TR)
  Receive Date: 20190920
  Receipt Date: 20190920
  Transmission Date: 20191005
  Serious: Yes (Other)
  Sender: FDA-Public Use
  Company Number: TR-GILEAD-2019-0429137

PATIENT
  Age: 64 Year
  Sex: Male

DRUGS (1)
  1. GENVOYA [Suspect]
     Active Substance: COBICISTAT\ELVITEGRAVIR\EMTRICITABINE\TENOFOVIR ALAFENAMIDE FUMARATE
     Indication: HIV INFECTION
     Dosage: UNK
     Route: 065

REACTIONS (8)
  - Decreased appetite [Unknown]
  - Blood HIV RNA increased [Unknown]
  - Gastric cancer [Unknown]
  - Anaemia [Unknown]
  - Vomiting [Unknown]
  - Abdominal pain [Unknown]
  - Nausea [Unknown]
  - Weight decreased [Unknown]
